FAERS Safety Report 13603048 (Version 1)
Quarter: 2017Q2

REPORT INFORMATION
  Report Type: Spontaneous
  Country: BR (occurrence: BR)
  Receive Date: 20170601
  Receipt Date: 20170601
  Transmission Date: 20170830
  Serious: Yes (Other)
  Sender: FDA-Public Use
  Company Number: BR-VALIDUS PHARMACEUTICALS LLC-BR-2017VAL000822

PATIENT

DRUGS (1)
  1. PARLODEL [Suspect]
     Active Substance: BROMOCRIPTINE MESYLATE
     Indication: HYPOTHALAMO-PITUITARY DISORDER
     Dosage: 2.5 MG, QD
     Route: 048

REACTIONS (6)
  - Fatigue [Unknown]
  - Drug use disorder [Unknown]
  - Somnolence [Unknown]
  - Menstrual disorder [Unknown]
  - Malaise [Unknown]
  - Headache [Unknown]
